FAERS Safety Report 18234569 (Version 2)
Quarter: 2020Q3

REPORT INFORMATION
  Report Type: Spontaneous
  Country: US (occurrence: US)
  Receive Date: 20200904
  Receipt Date: 20200916
  Transmission Date: 20201103
  Serious: Yes (Other)
  Sender: FDA-Public Use
  Company Number: NVSC2020US241482

PATIENT
  Age: 100 Year
  Sex: Female

DRUGS (2)
  1. BEOVU [Suspect]
     Active Substance: BROLUCIZUMAB-DBLL
     Dosage: UNK
     Route: 065
     Dates: start: 202006
  2. BEOVU [Suspect]
     Active Substance: BROLUCIZUMAB-DBLL
     Indication: NEOVASCULAR AGE-RELATED MACULAR DEGENERATION
     Dosage: UNK
     Route: 065
     Dates: start: 202002

REACTIONS (8)
  - Retinal vascular occlusion [Unknown]
  - Vitreous floaters [Unknown]
  - Endophthalmitis [Recovered/Resolved]
  - Retinal vasculitis [Unknown]
  - Blindness unilateral [Unknown]
  - Hypopyon [Unknown]
  - Retinal haemorrhage [Unknown]
  - Product dose omission issue [Unknown]
